FAERS Safety Report 8338133-X (Version None)
Quarter: 2012Q2

REPORT INFORMATION
  Report Type: 
  Country: None (occurrence: None)
  Receive Date: 20120504
  Receipt Date: 20120425
  Transmission Date: 20120825
  Serious: Yes (Hospitalization, Other)
  Sender: FDA-Public Use
  Company Number: CA-ASTRAZENECA-2012SE26673

PATIENT
  Age: 71 Year
  Sex: Female
  Weight: 63 kg

DRUGS (27)
  1. NITROGLYCERIN [Concomitant]
     Route: 061
     Dates: start: 20120331
  2. COLCHICINE [Concomitant]
     Indication: GOUT
     Route: 048
     Dates: start: 20120407, end: 20120409
  3. VITAMIN B6 [Concomitant]
  4. VITAMIN B-12 [Concomitant]
  5. ATORVASTATIN CALCIUM [Concomitant]
     Route: 048
     Dates: start: 20120331, end: 20120422
  6. ZOFRAN [Concomitant]
     Indication: NAUSEA
     Dosage: AS REQUIRED
  7. PLAVIX [Concomitant]
     Route: 048
     Dates: start: 20120331, end: 20120405
  8. ULTRA CRANBERRY [Concomitant]
  9. SUPER VISION MULTI+LUTEIN [Concomitant]
  10. MULTI VITAMIN/MINERAL SUPPLEMENTS [Concomitant]
  11. PERINDOPRIL ERBUMINE [Concomitant]
     Route: 048
     Dates: start: 20120331, end: 20120420
  12. D3 [Concomitant]
  13. D3 [Concomitant]
  14. CALCIUM [Concomitant]
  15. CEFTRIAXONE [Concomitant]
     Dates: start: 20120418
  16. FLAGYL [Concomitant]
     Route: 042
     Dates: start: 20120423
  17. LOVAZA [Concomitant]
  18. BRILINTA [Suspect]
     Indication: ACUTE CORONARY SYNDROME
     Route: 048
     Dates: start: 20120405, end: 20120423
  19. BRILINTA [Suspect]
     Indication: MYOCARDIAL INFARCTION
     Route: 048
     Dates: start: 20120405, end: 20120423
  20. METOPROLOL TARTRATE [Concomitant]
     Route: 048
     Dates: start: 20120331
  21. AMLODIPINE [Concomitant]
     Route: 048
     Dates: start: 20120331, end: 20120409
  22. FOLIC ACID [Concomitant]
  23. AMINO ACID SUPPLEMENTS [Concomitant]
  24. ASPIRIN [Concomitant]
     Route: 048
     Dates: start: 20120331
  25. PANTOPRAZOLE SODIUM [Concomitant]
     Route: 048
     Dates: start: 20120409
  26. CALCIUM [Concomitant]
  27. BLUEBERRY CONCENTRATE [Concomitant]

REACTIONS (10)
  - FATIGUE [None]
  - MYALGIA [None]
  - DECREASED APPETITE [None]
  - PYREXIA [None]
  - RENAL IMPAIRMENT [None]
  - STOMATITIS [None]
  - RASH [None]
  - COUGH [None]
  - CHEST PAIN [None]
  - LIVER FUNCTION TEST ABNORMAL [None]
